FAERS Safety Report 6264417-5 (Version None)
Quarter: 2009Q3

REPORT INFORMATION
  Report Type: 
  Country: None (occurrence: None)
  Receive Date: 20090710
  Receipt Date: 20090304
  Transmission Date: 20100115
  Serious: Yes (Hospitalization, Disabling)
  Sender: FDA-Public Use
  Company Number: B0583015A

PATIENT
  Age: 65 Year
  Sex: Male
  Weight: 55 kg

DRUGS (7)
  1. OMACOR [Suspect]
     Dosage: 1000MG PER DAY
     Route: 048
     Dates: start: 20050217
  2. BETA BLOCKER [Concomitant]
  3. ACETYLSALICYLIC ACID SRT [Concomitant]
  4. CLOPIDOGREL [Concomitant]
  5. DIURETIC [Concomitant]
  6. STATINS [Concomitant]
  7. ACE INHIBITOR [Concomitant]

REACTIONS (2)
  - CEREBRAL INFARCTION [None]
  - HEMIPARESIS [None]
